FAERS Safety Report 16086370 (Version 2)
Quarter: 2019Q1

REPORT INFORMATION
  Report Type: Report from Study
  Country: US (occurrence: US)
  Receive Date: 20190318
  Receipt Date: 20190319
  Transmission Date: 20190418
  Serious: Yes (Other)
  Sender: FDA-Public Use
  Company Number: US-PFIZER INC-2019115122

PATIENT
  Age: 15 Year
  Sex: Male

DRUGS (18)
  1. DOXORUBICIN HCL [Suspect]
     Active Substance: DOXORUBICIN HYDROCHLORIDE
     Indication: PREOPERATIVE CARE
  2. METHOTREXATE SODIUM. [Suspect]
     Active Substance: METHOTREXATE SODIUM
     Indication: OSTEOSARCOMA
     Dosage: UNK, CYCLIC (HIGH-DOSE, 12 TO 18 G, HDMTX, SYSTEMIC THERAPY, MODERN COMPREHENSIVE ADJUVANT TREATMEN)
     Route: 042
  3. CALCIUM FOLINATE [Suspect]
     Active Substance: LEUCOVORIN CALCIUM
     Indication: PREOPERATIVE CARE
  4. DACTINOMYCIN [Suspect]
     Active Substance: DACTINOMYCIN
     Indication: OSTEOSARCOMA
     Dosage: UNK, CYCLIC (COMBINATION, (BCD), SYSTEMIC THERAPY, MODERN COMPREHENSIVE ADJUVANT TREATMENT
     Route: 042
  5. METHOTREXATE SODIUM. [Suspect]
     Active Substance: METHOTREXATE SODIUM
     Indication: CHEMOTHERAPY
  6. CALCIUM FOLINATE [Suspect]
     Active Substance: LEUCOVORIN CALCIUM
     Indication: CHEMOTHERAPY
  7. CYCLOPHOSPHAMIDE. [Suspect]
     Active Substance: CYCLOPHOSPHAMIDE
     Indication: OSTEOSARCOMA
     Dosage: UNK, CYCLIC (COMBINATION, (BCD), SYSTEMIC THERAPY, MODERN COMPREHENSIVE ADJUVANT TREATMENT
     Route: 042
  8. DACTINOMYCIN [Suspect]
     Active Substance: DACTINOMYCIN
     Indication: CHEMOTHERAPY
  9. DOXORUBICIN HCL [Suspect]
     Active Substance: DOXORUBICIN HYDROCHLORIDE
     Indication: OSTEOSARCOMA
     Dosage: UNK, CYCLIC (MG/M^2,SYSTEMIC THERAPY, MODERN COMPREHENSIVE ADJUVANT TREATMENT)
     Route: 042
  10. BLEOMYCIN SULFATE [Suspect]
     Active Substance: BLEOMYCIN SULFATE
     Indication: OSTEOSARCOMA
     Dosage: UNK, CYCLIC (COMBINATION, BCD, SYSTEMIC THERAPY, MODERN COMPREHENSIVE ADJUVANT TREATMENT)
     Route: 042
  11. DACTINOMYCIN [Suspect]
     Active Substance: DACTINOMYCIN
     Indication: PREOPERATIVE CARE
  12. BLEOMYCIN SULFATE [Suspect]
     Active Substance: BLEOMYCIN SULFATE
     Indication: CHEMOTHERAPY
  13. BLEOMYCIN SULFATE [Suspect]
     Active Substance: BLEOMYCIN SULFATE
     Indication: PREOPERATIVE CARE
  14. DOXORUBICIN HCL [Suspect]
     Active Substance: DOXORUBICIN HYDROCHLORIDE
     Indication: CHEMOTHERAPY
  15. CALCIUM FOLINATE [Suspect]
     Active Substance: LEUCOVORIN CALCIUM
     Indication: OSTEOSARCOMA
     Dosage: UNK, CYCLIC (SYSTEMIC THERAPY, MODERN COMPREHENSIVE ADJUVANT TREATMENT)
     Route: 042
  16. METHOTREXATE SODIUM. [Suspect]
     Active Substance: METHOTREXATE SODIUM
     Indication: PREOPERATIVE CARE
  17. CYCLOPHOSPHAMIDE. [Suspect]
     Active Substance: CYCLOPHOSPHAMIDE
     Indication: PREOPERATIVE CARE
  18. CYCLOPHOSPHAMIDE. [Suspect]
     Active Substance: CYCLOPHOSPHAMIDE
     Indication: CHEMOTHERAPY

REACTIONS (2)
  - Acute myeloid leukaemia [Recovered/Resolved]
  - Second primary malignancy [Recovered/Resolved]
